FAERS Safety Report 6517765-5 (Version None)
Quarter: 2009Q4

REPORT INFORMATION
  Report Type: 
  Country: None (occurrence: None)
  Receive Date: 20091218
  Receipt Date: 20091203
  Transmission Date: 20100525
  Serious: Yes (Hospitalization)
  Sender: FDA-Public Use
  Company Number: 1-20897991

PATIENT
  Age: 70 Year
  Sex: Female
  Weight: 63.5036 kg

DRUGS (9)
  1. CARBAMAZEPINE [Suspect]
     Indication: TRIGEMINAL NEURALGIA
     Dosage: 200 MG DAILY, ORAL
     Route: 048
     Dates: start: 20070101
  2. AMLODIPINE [Concomitant]
  3. ATENOLOL [Concomitant]
  4. POTASSIUM CHLORIDE [Concomitant]
  5. PLAVIX [Concomitant]
  6. LISINOPRIL [Concomitant]
  7. TERAZOSN [Concomitant]
  8. CRESTOR [Concomitant]
  9. SERTRALINE HCL [Concomitant]

REACTIONS (1)
  - TREMOR [None]
